FAERS Safety Report 7996787-1 (Version None)
Quarter: 2011Q4

REPORT INFORMATION
  Report Type: 
  Country: None (occurrence: None)
  Receive Date: 20111221
  Receipt Date: 20111213
  Transmission Date: 20120403
  Serious: Yes (Hospitalization)
  Sender: FDA-Public Use
  Company Number: FR-JNJFOC-20111202279

PATIENT
  Sex: Male

DRUGS (2)
  1. RISPERDAL [Suspect]
     Indication: ABNORMAL BEHAVIOUR
     Route: 048
     Dates: start: 20110801, end: 20110920
  2. RISPERDAL [Suspect]
     Indication: AGITATION
     Route: 048
     Dates: start: 20110801, end: 20110920

REACTIONS (1)
  - ABNORMAL BEHAVIOUR [None]
